FAERS Safety Report 9677758 (Version 1)
Quarter: 2013Q4

REPORT INFORMATION
  Report Type: Report from Study
  Country: JP (occurrence: JP)
  Receive Date: 20131108
  Receipt Date: 20131108
  Transmission Date: 20140711
  Serious: Yes (Other)
  Sender: FDA-Public Use
  Company Number: JP-JNJFOC-20131102892

PATIENT
  Age: 83 Year
  Sex: Female
  Weight: 51 kg

DRUGS (10)
  1. XARELTO [Suspect]
     Indication: ATRIAL FIBRILLATION
     Route: 048
     Dates: start: 20120824
  2. XARELTO [Suspect]
     Indication: CEREBROVASCULAR ACCIDENT PROPHYLAXIS
     Route: 048
     Dates: start: 20120824
  3. XARELTO [Suspect]
     Indication: THROMBOSIS PROPHYLAXIS
     Route: 048
     Dates: start: 20120824
  4. DIGOXIN [Concomitant]
     Route: 048
  5. BALANCE [Concomitant]
     Route: 048
  6. ALDACTONE A [Concomitant]
     Route: 048
  7. ALLEGRA [Concomitant]
     Route: 048
  8. SPIROPENT [Concomitant]
     Route: 048
  9. DABIGATRAN ETEXILATE [Concomitant]
     Route: 048
     Dates: end: 20120824
  10. MAINTATE [Concomitant]
     Route: 048

REACTIONS (2)
  - Renal impairment [Not Recovered/Not Resolved]
  - Hepatic function abnormal [Not Recovered/Not Resolved]
